FAERS Safety Report 25399518 (Version 1)
Quarter: 2025Q2

REPORT INFORMATION
  Report Type: Spontaneous
  Country: US (occurrence: US)
  Receive Date: 20250605
  Receipt Date: 20250605
  Transmission Date: 20250716
  Serious: Yes (Hospitalization)
  Sender: TEVA
  Company Number: US-TEVA-VS-3335773

PATIENT
  Age: 23 Year
  Sex: Male

DRUGS (9)
  1. CLONIDINE [Suspect]
     Active Substance: CLONIDINE
     Indication: Neuroleptic malignant syndrome
     Route: 065
  2. LORAZEPAM [Suspect]
     Active Substance: LORAZEPAM
     Indication: Neuroleptic malignant syndrome
     Route: 042
  3. LORAZEPAM [Suspect]
     Active Substance: LORAZEPAM
     Indication: Neuroleptic malignant syndrome
     Dosage: TITRATED UP TO 12MG PER DAY
     Route: 042
  4. DEXMEDETOMIDINE [Suspect]
     Active Substance: DEXMEDETOMIDINE
     Indication: Neuroleptic malignant syndrome
     Route: 065
  5. CARBAMAZEPINE [Concomitant]
     Active Substance: CARBAMAZEPINE
     Indication: Psychotic disorder
     Route: 065
  6. BENZTROPINE [Concomitant]
     Active Substance: BENZTROPINE
     Indication: Catatonia
     Route: 065
  7. GUANFACINE [Concomitant]
     Active Substance: GUANFACINE
     Indication: Agitation
     Route: 065
  8. FLUPHENAZINE DECANOATE [Suspect]
     Active Substance: FLUPHENAZINE DECANOATE
     Indication: Psychotic disorder
     Route: 030
  9. DANTROLENE [Suspect]
     Active Substance: DANTROLENE
     Indication: Neuroleptic malignant syndrome
     Route: 042

REACTIONS (3)
  - Drug ineffective [Unknown]
  - Neuroleptic malignant syndrome [Recovering/Resolving]
  - Drug tolerance [Unknown]
